FAERS Safety Report 9224807 (Version 1)
Quarter: 2013Q2

REPORT INFORMATION
  Report Type: Spontaneous
  Country: US (occurrence: US)
  Receive Date: 20130411
  Receipt Date: 20130411
  Transmission Date: 20140414
  Serious: No
  Sender: FDA-Public Use
  Company Number: US-PFIZER INC-2013109849

PATIENT
  Age: 47 Year
  Sex: Female
  Weight: 132 kg

DRUGS (1)
  1. LEVOXYL [Suspect]
     Indication: HYPERTHYROIDISM
     Dosage: 50 UG, 1X/DAY
     Route: 048
     Dates: start: 2003

REACTIONS (1)
  - Fatigue [Unknown]
